FAERS Safety Report 24189357 (Version 1)
Quarter: 2024Q3

REPORT INFORMATION
  Report Type: Spontaneous
  Country: US (occurrence: None)
  Receive Date: 20240807
  Receipt Date: 20240807
  Transmission Date: 20241017
  Serious: No
  Sender: Public
  Company Number: None

PATIENT
  Age: 65 Year
  Sex: Female

DRUGS (1)
  1. AMBRISENTAN [Suspect]
     Active Substance: AMBRISENTAN
     Indication: Pulmonary fibrosis
     Dosage: 10 MEQ MILLIEQIVALENT(S) DAILY ORAL
     Route: 048

REACTIONS (6)
  - Fall [None]
  - Wrist fracture [None]
  - Dyspepsia [None]
  - Cough [None]
  - Dyspnoea [None]
  - Wheezing [None]

NARRATIVE: CASE EVENT DATE: 20240807
